FAERS Safety Report 7494732-9 (Version None)
Quarter: 2011Q2

REPORT INFORMATION
  Report Type: 
  Country: None (occurrence: None)
  Receive Date: 20110520
  Receipt Date: 20110516
  Transmission Date: 20111010
  Serious: Yes (Death, Life-Threatening, Hospitalization, Other)
  Sender: FDA-Public Use
  Company Number: JP-GENZYME-FLUD-1000393

PATIENT
  Age: 2 Year
  Sex: Female
  Weight: 11 kg

DRUGS (14)
  1. TACROLIMUS [Concomitant]
     Indication: PROPHYLAXIS AGAINST GRAFT VERSUS HOST DISEASE
     Dosage: UNK
     Route: 065
     Dates: start: 20100525, end: 20100730
  2. POLYMYXIN-B-SULFATE [Concomitant]
     Indication: INFECTION PROPHYLAXIS
     Dosage: UNK
     Route: 065
     Dates: start: 20100514, end: 20100730
  3. AMPHOTERICIN B [Concomitant]
     Indication: INFECTION PROPHYLAXIS
     Dosage: UNK
     Route: 065
     Dates: start: 20100514, end: 20100730
  4. CEFOZOPRAN HYDROCHLORIDE [Concomitant]
     Indication: INFECTION PROPHYLAXIS
     Dosage: UNK
     Route: 065
     Dates: start: 20100515, end: 20100527
  5. MICAFUNGIN [Concomitant]
     Indication: INFECTION PROPHYLAXIS
     Dosage: UNK
     Route: 065
     Dates: start: 20100527, end: 20100617
  6. THYMOGLOBULIN [Suspect]
     Dosage: 25 MG, ONCE
     Route: 042
     Dates: start: 20100521, end: 20100524
  7. ACYCLOVIR [Concomitant]
     Indication: INFECTION PROPHYLAXIS
     Dosage: UNK
     Route: 065
     Dates: start: 20100514, end: 20100730
  8. TEICOPLANIN [Concomitant]
     Indication: INFECTION PROPHYLAXIS
     Dosage: UNK
     Route: 065
     Dates: start: 20100608, end: 20100617
  9. PANIPENEM [Concomitant]
     Indication: INFECTION PROPHYLAXIS
     Dosage: UNK
     Route: 065
     Dates: start: 20100527, end: 20100608
  10. FLUDARA [Suspect]
     Indication: BONE MARROW CONDITIONING REGIMEN
     Dosage: UNK
     Route: 065
     Dates: start: 20100518, end: 20100521
  11. THYMOGLOBULIN [Suspect]
     Indication: BONE MARROW CONDITIONING REGIMEN
     Dosage: 50 MG, ONCE
     Route: 042
     Dates: start: 20100514, end: 20100514
  12. THYMOGLOBULIN [Suspect]
     Dosage: 50 MG, ONCE
     Route: 042
     Dates: start: 20100531, end: 20100531
  13. MELPHALAN HYDROCHLORIDE [Concomitant]
     Indication: BONE MARROW CONDITIONING REGIMEN
     Dosage: UNK
     Route: 065
     Dates: start: 20100522, end: 20100523
  14. TOBRAMYCIN [Concomitant]
     Indication: INFECTION PROPHYLAXIS
     Dosage: UNK
     Route: 065
     Dates: start: 20100514, end: 20100730

REACTIONS (7)
  - RASH [None]
  - DIARRHOEA [None]
  - PYREXIA [None]
  - ACUTE MYELOID LEUKAEMIA RECURRENT [None]
  - PNEUMONIA [None]
  - ACUTE GRAFT VERSUS HOST DISEASE [None]
  - EPSTEIN-BARR VIRUS TEST POSITIVE [None]
